FAERS Safety Report 9556442 (Version 2)
Quarter: 2014Q3

REPORT INFORMATION
  Report Type: Spontaneous
  Country: IT (occurrence: None)
  Receive Date: 20130819
  Receipt Date: 20140828
  Transmission Date: 20150326
  Serious: Yes (Hospitalization)
  Sender: FDA-Public Use
  Company Number: 13IT007201

PATIENT
  Age: 46 Year
  Sex: Male
  Weight: 85 kg

DRUGS (4)
  1. PRAZENE [Concomitant]
     Active Substance: PRAZEPAM
  2. DENIBAN [Suspect]
     Active Substance: AMISULPRIDE
     Indication: DYSTHYMIC DISORDER
     Route: 048
     Dates: start: 20130522, end: 20130529
  3. OMEPRAZOLE. [Concomitant]
     Active Substance: OMEPRAZOLE
  4. PAROXETINE (PAROXETINE) [Suspect]
     Active Substance: PAROXETINE HYDROCHLORIDE
     Indication: DEPRESSION
     Route: 048
     Dates: start: 20130522, end: 20130529

REACTIONS (1)
  - Hiccups [None]

NARRATIVE: CASE EVENT DATE: 20130524
